FAERS Safety Report 8517595-9 (Version None)
Quarter: 2012Q3

REPORT INFORMATION
  Report Type: 
  Country: None (occurrence: None)
  Receive Date: 20120718
  Receipt Date: 20120703
  Transmission Date: 20120928
  Serious: Yes (Death, Other)
  Sender: FDA-Public Use
  Company Number: JP-ROCHE-1070605

PATIENT
  Sex: Female

DRUGS (10)
  1. PACLITAXEL [Concomitant]
     Indication: BREAST CANCER METASTATIC
     Route: 041
     Dates: start: 20120127, end: 20120330
  2. NEUROVITAN (UKRAINE) [Concomitant]
     Dosage: DOSAGE IS UNCERTAIN.
     Route: 048
  3. LEVOFLOXACIN [Concomitant]
     Dosage: DOSAGE IS UNCERTAIN.
     Route: 047
  4. MUCOSTA [Concomitant]
     Indication: GASTRITIS
     Route: 048
     Dates: start: 20111101
  5. JUVELA N [Concomitant]
     Dosage: DOSAGE IS UNCERTAIN.
     Route: 048
  6. KOLANTYL [Concomitant]
     Dosage: DOSAGE IS UNCERTAIN.
     Route: 048
  7. LYRICA [Concomitant]
     Indication: NEUROPATHY PERIPHERAL
     Route: 048
     Dates: start: 20110701, end: 20120412
  8. LOXONIN [Concomitant]
     Indication: PAIN
     Dosage: A DOSE
     Route: 048
     Dates: start: 20110706
  9. ALLOPURINOL [Concomitant]
     Dosage: DOSAGE IS UNCERTAIN.
     Route: 048
  10. AVASTIN [Suspect]
     Indication: BREAST CANCER METASTATIC
     Route: 041
     Dates: start: 20120127, end: 20120406

REACTIONS (3)
  - GASTROINTESTINAL PERFORATION [None]
  - DISSEMINATED INTRAVASCULAR COAGULATION [None]
  - HEPATIC FAILURE [None]
